FAERS Safety Report 10089520 (Version 1)
Quarter: 2014Q2

REPORT INFORMATION
  Report Type: Spontaneous
  Country: IN (occurrence: IN)
  Receive Date: 20140421
  Receipt Date: 20140421
  Transmission Date: 20141212
  Serious: Yes (Disabling)
  Sender: FDA-Public Use
  Company Number: IN-MYLANLABS-2014S1008290

PATIENT
  Age: 28 Year
  Sex: Male

DRUGS (4)
  1. ZIPRASIDONE [Suspect]
     Indication: SCHIZOPHRENIA, PARANOID TYPE
     Dosage: 40MG/D; INCREASED TO 80MG/D
     Route: 065
  2. ZIPRASIDONE [Suspect]
     Indication: SCHIZOPHRENIA, PARANOID TYPE
     Dosage: 80MG/D
     Route: 065
  3. CLONAZEPAM [Concomitant]
     Indication: PANIC ATTACK
     Dosage: TAPERING DOSE; 2 COURSES
     Route: 065
  4. SERTRALINE [Concomitant]
     Indication: SCHIZOPHRENIA, PARANOID TYPE
     Dosage: 25MG/D
     Route: 065

REACTIONS (3)
  - Extrapyramidal disorder [Recovering/Resolving]
  - Parkinsonism [Recovering/Resolving]
  - Akathisia [Recovering/Resolving]
